FAERS Safety Report 5170660-9 (Version None)
Quarter: 2006Q4

REPORT INFORMATION
  Report Type: 
  Country: None (occurrence: None)
  Receive Date: 20061205
  Receipt Date: 20061121
  Transmission Date: 20070319
  Serious: Yes (Death)
  Sender: FDA-Public Use
  Company Number: 06H-028-0311277-00

PATIENT

DRUGS (16)
  1. MAGNESIUM SULFATE [Suspect]
     Dosage: INTRAPLACENTAL
  2. PHENYTOIN [Suspect]
     Dosage: INTRAPLACENTAL
  3. PROPOFOL [Suspect]
  4. PENTOTHAL [Suspect]
     Dosage: INTRAPLACENTAL
  5. MIDAZOLAM HCL [Suspect]
  6. DIAZEPAM [Suspect]
  7. LORAZEPAM [Suspect]
  8. SODIUM CITRATE [Concomitant]
  9. METOCLOPRAMIDE [Concomitant]
  10. SUCCCINYLCHOLINE (SUXAMETHONIUM CHLORIDE) [Concomitant]
  11. 100% OXYGEN (OXYGEN) [Concomitant]
  12. CALCIUM CHLORIDE (CALCIUM CHLORIDE HEXAHYDRATE) [Concomitant]
  13. 40% OXYGEN (OXYGEN) [Concomitant]
  14. 50% DEXTROSE (GLUCOSE INJECTION) [Concomitant]
  15. PHENYLEPHRINE [Concomitant]
  16. DOPAMINE HCL [Concomitant]

REACTIONS (3)
  - DRUG EXPOSURE DURING PREGNANCY [None]
  - DRUG TOXICITY [None]
  - INTRA-UTERINE DEATH [None]
